FAERS Safety Report 8529503-5 (Version None)
Quarter: 2012Q3

REPORT INFORMATION
  Report Type: 
  Country: None (occurrence: None)
  Receive Date: 20120717
  Receipt Date: 20120717
  Transmission Date: 20120928
  Serious: No
  Sender: FDA-Public Use
  Company Number: None

PATIENT

DRUGS (1)
  1. ROPIVACAINE HYDROCHLORIDE [Suspect]

REACTIONS (4)
  - MEDICATION ERROR [None]
  - DRUG EFFECT DECREASED [None]
  - FALL [None]
  - INCORRECT DOSE ADMINISTERED [None]
